FAERS Safety Report 9851233 (Version 2)
Quarter: 2014Q1

REPORT INFORMATION
  Report Type: Spontaneous
  Country: US (occurrence: US)
  Receive Date: 20140128
  Receipt Date: 20140128
  Transmission Date: 20141002
  Serious: Yes (Hospitalization, Other)
  Sender: FDA-Public Use
  Company Number: US-UCBSA-104410

PATIENT
  Age: 31 Year
  Sex: Male
  Weight: 106.8 kg

DRUGS (3)
  1. KEPPRA XR [Suspect]
     Indication: CONVULSION
     Dosage: DRUG : 500 MG (BEEN TAKING SINCE HE WAS 18 OR 19 YEARS OLD)
     Route: 048
  2. DILANTIN [Concomitant]
     Indication: EPILEPSY
     Dosage: STARTED IN END OF NOVEMBER
     Route: 048
  3. DEPAKOTE [Concomitant]
     Indication: EPILEPSY
     Dosage: BEEN TAKING SINCE 18 OR 19 YEARS OLD
     Route: 048

REACTIONS (6)
  - Grand mal convulsion [Recovered/Resolved]
  - Amnesia [Not Recovered/Not Resolved]
  - Facial bones fracture [Recovered/Resolved]
  - Laceration [Recovered/Resolved]
  - Petit mal epilepsy [Recovered/Resolved]
  - Convulsion [Recovered/Resolved]
